FAERS Safety Report 7426681-6 (Version None)
Quarter: 2011Q2

REPORT INFORMATION
  Report Type: 
  Country: None (occurrence: None)
  Receive Date: 20110420
  Receipt Date: 20110418
  Transmission Date: 20111010
  Serious: Yes (Other)
  Sender: FDA-Public Use
  Company Number: US-PFIZER INC-2011024779

PATIENT
  Sex: Female

DRUGS (2)
  1. MOBIC [Concomitant]
     Indication: PAIN
     Dosage: UNK
     Dates: start: 20040701, end: 20080501
  2. CHANTIX [Suspect]
     Indication: SMOKING CESSATION THERAPY
     Dosage: STARTER AND TWO CONTINUATION PACKS
     Route: 048
     Dates: start: 20070608, end: 20070901

REACTIONS (5)
  - AGGRESSION [None]
  - SUICIDAL IDEATION [None]
  - DEPRESSION [None]
  - MENTAL DISORDER [None]
  - ANXIETY [None]
